FAERS Safety Report 20309864 (Version 1)
Quarter: 2022Q1

REPORT INFORMATION
  Report Type: Spontaneous
  Country: US (occurrence: US)
  Receive Date: 20220107
  Receipt Date: 20220107
  Transmission Date: 20220423
  Serious: No
  Sender: FDA-Public Use
  Company Number: US-PFIZER INC-2021517545

PATIENT
  Age: 62 Year
  Sex: Male
  Weight: 102.06 kg

DRUGS (1)
  1. SILDENAFIL CITRATE [Suspect]
     Active Substance: SILDENAFIL CITRATE
     Indication: Erectile dysfunction
     Dosage: 100 MG, ONCE A DAY BY MOUTH, AS NEEDED
     Route: 048

REACTIONS (2)
  - Cyanopsia [Recovered/Resolved]
  - Accidental overdose [Unknown]
